FAERS Safety Report 19238967 (Version 2)
Quarter: 2022Q3

REPORT INFORMATION
  Report Type: Spontaneous
  Country: SE (occurrence: SE)
  Receive Date: 20210510
  Receipt Date: 20220713
  Transmission Date: 20221026
  Serious: Yes (Life-Threatening, Hospitalization, Disabling, Other)
  Sender: FDA-Public Use
  Company Number: SE-GSKCCFEMEA-CASE-01206628_AE-44198

PATIENT

DRUGS (2)
  1. BUPROPION HYDROCHLORIDE [Suspect]
     Active Substance: BUPROPION HYDROCHLORIDE
     Indication: Fatigue
     Dosage: UNK
     Dates: start: 202008
  2. ZOLOFT [Concomitant]
     Active Substance: SERTRALINE HYDROCHLORIDE
     Indication: Product used for unknown indication
     Dosage: UNK

REACTIONS (12)
  - Cardiac arrest [Not Recovered/Not Resolved]
  - Renal failure [Unknown]
  - Self-injurious ideation [Unknown]
  - Memory impairment [Unknown]
  - Nausea [Unknown]
  - Alopecia [Unknown]
  - Headache [Unknown]
  - Sensory disturbance [Unknown]
  - Malaise [Unknown]
  - Cardiovascular disorder [Unknown]
  - Overdose [Unknown]
  - Product use in unapproved indication [Unknown]

NARRATIVE: CASE EVENT DATE: 20200825
